FAERS Safety Report 22294008 (Version 5)
Quarter: 2023Q4

REPORT INFORMATION
  Report Type: Spontaneous
  Country: IN (occurrence: IN)
  Receive Date: 20230508
  Receipt Date: 20231220
  Transmission Date: 20240110
  Serious: Yes (Other)
  Sender: FDA-Public Use
  Company Number: IN-PFIZER INC-PV202300079130

PATIENT
  Age: 70 Year
  Sex: Male
  Weight: 45 kg

DRUGS (7)
  1. CRIZOTINIB [Suspect]
     Active Substance: CRIZOTINIB
     Indication: Non-small cell lung cancer metastatic
     Dosage: UNK
     Route: 048
  2. CRIZOTINIB [Suspect]
     Active Substance: CRIZOTINIB
     Dosage: 2 DF, 1X/DAY
     Dates: start: 202301
  3. CRIZOTINIB [Suspect]
     Active Substance: CRIZOTINIB
     Dosage: 250 MG, 2X/DAY
     Route: 048
  4. CRIZOTINIB [Suspect]
     Active Substance: CRIZOTINIB
     Dosage: 250 MG, 2X/DAY (X 3 MONTHS)
     Route: 048
  5. URIMAX D [Concomitant]
     Dosage: 1 DF, 1X/DAY (1 TAB AT BED TIME)
  6. URIMAX D [Concomitant]
     Dosage: 1 DF, 1X/DAY (1 TAB AT BED TIME) X 3 MONTHS
  7. ZOLEDRONIC ACID [Concomitant]
     Active Substance: ZOLEDRONIC ACID
     Dosage: 4 MG (+100ML NS IV-OVER 30MIN)
     Route: 042

REACTIONS (4)
  - Coronary artery disease [Recovered/Resolved]
  - Tremor [Recovered/Resolved]
  - Prostatic specific antigen abnormal [Unknown]
  - Product dose omission in error [Unknown]
